FAERS Safety Report 5087355-2 (Version None)
Quarter: 2006Q3

REPORT INFORMATION
  Report Type: 
  Country: None (occurrence: None)
  Receive Date: 20060824
  Receipt Date: 20060814
  Transmission Date: 20061208
  Serious: Yes (Other)
  Sender: FDA-Public Use
  Company Number: PHBS2006NL12568

PATIENT
  Sex: Female

DRUGS (4)
  1. PAMIDRONATE DISODIUM [Suspect]
     Indication: HYPERCALCAEMIA
     Dosage: DAILY DOSAGE OF 450 MG FOR 6 MONTHS
     Route: 048
  2. PAMIDRONATE DISODIUM [Suspect]
     Dosage: DAILY DOSAGE OF 600 MG FOR 2 MONTHS
     Route: 048
  3. PAMIDRONATE DISODIUM [Suspect]
     Dosage: DAILY DOSAGE OF 300 MG FOR 20 MONTHS
     Route: 048
  4. PAMIDRONATE DISODIUM [Suspect]
     Dosage: 60 MG, AT 2-WEEKLY INTERVALS
     Route: 042

REACTIONS (2)
  - FOCAL GLOMERULOSCLEROSIS [None]
  - PROTEINURIA [None]
